FAERS Safety Report 21670095 (Version 1)
Quarter: 2022Q4

REPORT INFORMATION
  Report Type: Spontaneous
  Country: US (occurrence: None)
  Receive Date: 20221201
  Receipt Date: 20221201
  Transmission Date: 20230113
  Serious: No
  Sender: FDA-Public Use
  Company Number: None

PATIENT
  Age: 39 Year
  Sex: Female
  Weight: 117.93 kg

DRUGS (1)
  1. STELARA [Suspect]
     Active Substance: USTEKINUMAB
     Indication: Psoriasis
     Dosage: INJECT 90MG SUBCUTANEOUSLY EVERY AT WEEK 0 AND WEEK 4 AS DIRECTED.
     Route: 058
     Dates: start: 202003

REACTIONS (1)
  - Myocardial infarction [None]
